FAERS Safety Report 17183491 (Version 2)
Quarter: 2019Q4

REPORT INFORMATION
  Report Type: Report from Study
  Country: BR (occurrence: BR)
  Receive Date: 20191220
  Receipt Date: 20191230
  Transmission Date: 20200122
  Serious: Yes (Other)
  Sender: FDA-Public Use
  Company Number: NVSC2019BR071557

PATIENT
  Sex: Female
  Weight: 73 kg

DRUGS (3)
  1. TIMOLOL MALEATE. [Suspect]
     Active Substance: TIMOLOL MALEATE
     Indication: GLAUCOMA
     Dosage: 1 GTT (IN THE LEFT EYE), QD (20 YEARS AGO)
     Route: 047
  2. DUO TRAVATAN [Suspect]
     Active Substance: TIMOLOL MALEATE\TRAVOPROST
     Indication: GLAUCOMA
     Dosage: 1 GTT (IN EACH EYE), QD (3 YEARS AGO)
     Route: 047
  3. TRAVOPROST. [Concomitant]
     Active Substance: TRAVOPROST
     Indication: PRODUCT USED FOR UNKNOWN INDICATION
     Dosage: UNK
     Route: 065

REACTIONS (8)
  - Cataract [Not Recovered/Not Resolved]
  - Fatigue [Unknown]
  - Intervertebral disc protrusion [Not Recovered/Not Resolved]
  - Visual impairment [Unknown]
  - Eye pain [Recovered/Resolved]
  - Drug ineffective [Not Recovered/Not Resolved]
  - Back pain [Recovering/Resolving]
  - Burning sensation [Recovered/Resolved]

NARRATIVE: CASE EVENT DATE: 2003
